FAERS Safety Report 4349646-X (Version None)
Quarter: 2004Q2

REPORT INFORMATION
  Report Type: 
  Country: None (occurrence: None)
  Receive Date: 20040427
  Receipt Date: 20031111
  Transmission Date: 20050107
  Serious: No
  Sender: FDA-Public Use
  Company Number: 000695

PATIENT
  Age: 82 Year
  Sex: Male

DRUGS (3)
  1. ZEVALIN [Suspect]
     Indication: NON-HODGKIN'S LYMPHOMA
     Dosage: SEE IMAGE
     Route: 042
     Dates: start: 20031105, end: 20031105
  2. ZEVALIN [Suspect]
     Indication: NON-HODGKIN'S LYMPHOMA
     Dosage: SEE IMAGE
     Route: 042
     Dates: start: 20031105, end: 20031105
  3. ZEVALIN [Suspect]

REACTIONS (1)
  - THROMBOCYTOPENIA [None]
